FAERS Safety Report 5741863-7 (Version None)
Quarter: 2008Q2

REPORT INFORMATION
  Report Type: 
  Country: None (occurrence: None)
  Receive Date: 20080515
  Receipt Date: 20080508
  Transmission Date: 20081010
  Serious: Yes (Hospitalization)
  Sender: FDA-Public Use
  Company Number: 2006BI016361

PATIENT
  Age: 53 Year
  Sex: Female

DRUGS (1)
  1. AVONEX [Suspect]
     Indication: MULTIPLE SCLEROSIS
     Dosage: 30 UG; QW; IM
     Route: 030
     Dates: start: 19980401

REACTIONS (5)
  - ARTHRITIS BACTERIAL [None]
  - CHONDROPATHY [None]
  - POST PROCEDURAL INFECTION [None]
  - ROAD TRAFFIC ACCIDENT [None]
  - STAPHYLOCOCCAL INFECTION [None]
